FAERS Safety Report 9420441 (Version 1)
Quarter: 2013Q3

REPORT INFORMATION
  Report Type: Report from Study
  Country: US (occurrence: US)
  Receive Date: 20130725
  Receipt Date: 20130725
  Transmission Date: 20140515
  Serious: No
  Sender: FDA-Public Use
  Company Number: US-ABBOTT-13P-163-1068553-00

PATIENT
  Age: 59 Year
  Sex: Female

DRUGS (4)
  1. SYNTHROID [Suspect]
     Indication: HYPERTHYROIDISM
     Dosage: SINCE OCT 2012, HAD A 90 DAY SUPPLY WITH ISSUES
     Route: 048
     Dates: start: 201206
  2. SYNTHROID [Suspect]
     Indication: HYPERTHYROIDISM
     Dosage: 90 DAY SUPPLY
     Route: 048
     Dates: start: 201210
  3. PROAIR [Concomitant]
     Indication: PRODUCT USED FOR UNKNOWN INDICATION
     Route: 055
  4. AMITRIPTYLINE [Concomitant]
     Indication: PRODUCT USED FOR UNKNOWN INDICATION
     Route: 048
     Dates: start: 201207

REACTIONS (6)
  - Hair growth abnormal [Recovered/Resolved]
  - Mental impairment [Recovered/Resolved]
  - Product quality issue [Recovered/Resolved]
  - Fatigue [Recovered/Resolved]
  - Flushing [Recovered/Resolved]
  - Blood thyroid stimulating hormone increased [Not Recovered/Not Resolved]
